FAERS Safety Report 4953193-1 (Version None)
Quarter: 2006Q1

REPORT INFORMATION
  Report Type: 
  Country: None (occurrence: None)
  Receive Date: 20060324
  Receipt Date: 20051019
  Transmission Date: 20060701
  Serious: Yes (Hospitalization)
  Sender: FDA-Public Use
  Company Number: US-MERCK-0510USA08253

PATIENT
  Age: 54 Year
  Sex: Male

DRUGS (4)
  1. VIOXX [Suspect]
     Route: 048
     Dates: start: 20000801, end: 20010401
  2. VIOXX [Suspect]
     Route: 048
     Dates: start: 20010301, end: 20050301
  3. CELEBREX [Concomitant]
     Indication: OSTEOARTHRITIS
     Route: 048
     Dates: start: 20010301, end: 20050301
  4. CELEBREX [Concomitant]
     Indication: BACK PAIN
     Route: 048
     Dates: start: 20010301, end: 20050301

REACTIONS (17)
  - ANAEMIA [None]
  - BENIGN PROSTATIC HYPERPLASIA [None]
  - CEREBROVASCULAR ACCIDENT [None]
  - GASTROINTESTINAL HAEMORRHAGE [None]
  - HYPERKALAEMIA [None]
  - HYPERLIPIDAEMIA [None]
  - INTERVERTEBRAL DISC PROTRUSION [None]
  - MUSCLE SPASMS [None]
  - MYELOPROLIFERATIVE DISORDER [None]
  - OESOPHAGITIS [None]
  - PLATELET COUNT INCREASED [None]
  - RENAL DISORDER [None]
  - SEROMA [None]
  - SPINAL COLUMN STENOSIS [None]
  - THROMBOCYTHAEMIA [None]
  - TRANSIENT ISCHAEMIC ATTACK [None]
  - WOUND INFECTION STAPHYLOCOCCAL [None]
